FAERS Safety Report 6085485-X (Version None)
Quarter: 2009Q1

REPORT INFORMATION
  Report Type: 
  Country: None (occurrence: None)
  Receive Date: 20090218
  Receipt Date: 20090205
  Transmission Date: 20090719
  Serious: Yes (Hospitalization, Other)
  Sender: FDA-Public Use
  Company Number: 200814575GPV

PATIENT
  Age: 66 Year
  Sex: Male

DRUGS (15)
  1. CAMPATH [Suspect]
     Indication: CHRONIC LYMPHOCYTIC LEUKAEMIA
     Dates: start: 20050927, end: 20060123
  2. FLUDARABINE PHOSPHATE [Suspect]
     Indication: CHRONIC LYMPHOCYTIC LEUKAEMIA
     Dates: start: 20061024
  3. CYCLOPHOSPHAMIDE [Suspect]
     Indication: CHRONIC LYMPHOCYTIC LEUKAEMIA
     Dates: start: 20061024
  4. LEUKERAN [Concomitant]
  5. PREDNISOLON (PREDNISOLONE [PREDNISOLONE]) [Concomitant]
  6. CYCLOPHOSPHAMIDE [Concomitant]
  7. ADRIAMYCIN PFS [Concomitant]
  8. VINCRISTINE SULFATE [Concomitant]
  9. PREDNISONE [Concomitant]
  10. DEXAMETHASON (DEXAMETHASONE [DEXAMETHASONE]) [Concomitant]
  11. CARMUSTINE [Concomitant]
  12. ETOPOSIDE [Concomitant]
  13. CYTARABINE [Concomitant]
  14. MELPHALAN (MELPHALAN) [Concomitant]
  15. FLUDARABINE PHOSPHATE [Concomitant]

REACTIONS (1)
  - MYELODYSPLASTIC SYNDROME [None]
